FAERS Safety Report 5173969-8 (Version None)
Quarter: 2006Q4

REPORT INFORMATION
  Report Type: 
  Country: None (occurrence: None)
  Receive Date: 20061214
  Receipt Date: 20060926
  Transmission Date: 20070319
  Serious: No
  Sender: FDA-Public Use
  Company Number: US-AMGEN-US194888

PATIENT
  Sex: Male
  Weight: 75.4 kg

DRUGS (4)
  1. ENBREL [Suspect]
     Indication: PSORIATIC ARTHROPATHY
     Route: 058
     Dates: start: 20040801
  2. METHOTREXATE [Concomitant]
     Route: 058
     Dates: start: 20040601
  3. FOLIC ACID [Concomitant]
     Route: 065
     Dates: start: 20040601
  4. ADVAIR DISKUS 100/50 [Concomitant]
     Route: 065

REACTIONS (5)
  - HEADACHE [None]
  - INFLUENZA LIKE ILLNESS [None]
  - INJECTION SITE BRUISING [None]
  - INJECTION SITE ERYTHEMA [None]
  - URTICARIA [None]
